FAERS Safety Report 12072726 (Version 1)
Quarter: 2016Q1

REPORT INFORMATION
  Report Type: Report from Study
  Country: KR (occurrence: KR)
  Receive Date: 20160212
  Receipt Date: 20160212
  Transmission Date: 20160526
  Serious: Yes (Hospitalization)
  Sender: FDA-Public Use
  Company Number: KR-PFIZER INC-2009286065

PATIENT
  Age: 61 Year
  Sex: Male
  Weight: 44.2 kg

DRUGS (18)
  1. METFORMIN HYDROCHLORIDE/SITAGLIPTIN [Concomitant]
     Indication: DIABETES MELLITUS
     Dosage: 50 MG, 1X/DAY
     Route: 048
     Dates: start: 1989
  2. DEXTROSE W/POTASSIUM CHLORIDE AND NACL [Concomitant]
     Dosage: 1 L, 1X/DAY
     Route: 042
     Dates: start: 20091007, end: 20091007
  3. GRANISETRON [Concomitant]
     Active Substance: GRANISETRON
     Dosage: 1 MG, 1X/DAY
     Route: 042
     Dates: start: 20091013, end: 20091013
  4. CADUET [Concomitant]
     Active Substance: AMLODIPINE BESYLATE\ATORVASTATIN CALCIUM
     Indication: HYPERTENSION
     Dosage: 5 MG, 1X/DAY
     Route: 048
     Dates: start: 1989
  5. DEXAMETHASONE. [Concomitant]
     Active Substance: DEXAMETHASONE
     Dosage: 10 MG, 1X/DAY
     Route: 042
     Dates: start: 20091013, end: 20091013
  6. DEXTROSE. [Concomitant]
     Active Substance: DEXTROSE
     Dosage: 50 ML, 1X/DAY
     Route: 042
     Dates: start: 20091013, end: 20091013
  7. CAPECITABINE. [Concomitant]
     Active Substance: CAPECITABINE
     Indication: GASTRIC CANCER
     Dosage: 1450 MG, 2X/DAY, DAY 1 TO DAY 14, EVERY 21 DAYS
     Route: 048
     Dates: start: 20091013, end: 20091020
  8. LIDOCAINE VISCOUS [Concomitant]
     Active Substance: LIDOCAINE HYDROCHLORIDE
     Dosage: 10 ML, 1X/DAY
     Route: 048
     Dates: start: 20091007, end: 20091007
  9. VACCINIUM MYRTILLUS [Concomitant]
     Dosage: 170 MG, 2X/DAY
     Route: 048
     Dates: start: 20091007, end: 20091013
  10. CISPLATIN. [Suspect]
     Active Substance: CISPLATIN
     Indication: GASTRIC CANCER
     Dosage: 118 MG, DAY 1 EVERY 3 WEEKS
     Route: 042
     Dates: start: 20091013, end: 20091013
  11. INSULIN [Concomitant]
     Active Substance: INSULIN NOS
     Dosage: 6 IU, 1X/DAY
     Route: 058
     Dates: start: 20091013, end: 20091013
  12. NORMAL SALINE [Concomitant]
     Active Substance: SODIUM CHLORIDE
     Dosage: 500 ML, 1X/DAY
     Route: 042
     Dates: start: 20091013, end: 20091013
  13. DEXAMETHASONE. [Concomitant]
     Active Substance: DEXAMETHASONE
     Dosage: 4 MG, 2X/DAY
     Route: 048
     Dates: start: 20091014, end: 20091015
  14. ALGINIC ACID [Concomitant]
     Active Substance: ALGINIC ACID
     Dosage: 15 ML, 2X/DAY
     Route: 048
     Dates: start: 20091007, end: 20091013
  15. AXITINIB [Suspect]
     Active Substance: AXITINIB
     Indication: GASTRIC CANCER
     Dosage: 5 MG, 2X/DAY
     Route: 048
     Dates: start: 20091013, end: 20091020
  16. INSULIN HUMAN [Concomitant]
     Active Substance: INSULIN HUMAN
     Dosage: 4 IU, 1X/DAY
     Route: 058
     Dates: start: 20091007, end: 20091026
  17. MIDAZOLAM [Concomitant]
     Active Substance: MIDAZOLAM\MIDAZOLAM HYDROCHLORIDE
     Dosage: 5 MG, 1X/DAY
     Route: 042
     Dates: start: 20091007, end: 20091007
  18. MANNITOL. [Concomitant]
     Active Substance: MANNITOL
     Dosage: 100 ML, 1X/DAY
     Route: 042
     Dates: start: 20091013, end: 20091013

REACTIONS (1)
  - Acute kidney injury [Recovered/Resolved]

NARRATIVE: CASE EVENT DATE: 20091020
